FAERS Safety Report 9883636 (Version 1)
Quarter: 2014Q1

REPORT INFORMATION
  Report Type: Spontaneous
  Country: CA (occurrence: CA)
  Receive Date: 20140210
  Receipt Date: 20140210
  Transmission Date: 20141002
  Serious: Yes (Hospitalization, Other)
  Sender: FDA-Public Use
  Company Number: CA-AMGEN-CANSP2014008349

PATIENT
  Age: 57 Year
  Sex: Female

DRUGS (2)
  1. XGEVA [Suspect]
     Indication: NEOPLASM MALIGNANT
     Dosage: 120 MG, UNK
     Route: 065
     Dates: start: 20130219, end: 201312
  2. DILANTIN                           /00017401/ [Concomitant]
     Route: 065

REACTIONS (2)
  - Convulsion [Recovered/Resolved]
  - Drug ineffective [Unknown]
